APPROVED DRUG PRODUCT: LITHIUM CARBONATE
Active Ingredient: LITHIUM CARBONATE
Strength: 150MG
Dosage Form/Route: CAPSULE;ORAL
Application: A079139 | Product #001 | TE Code: AB
Applicant: GLENMARK PHARMACEUTICALS LTD
Approved: Feb 3, 2009 | RLD: No | RS: No | Type: RX